FAERS Safety Report 19818687 (Version 1)
Quarter: 2021Q3

REPORT INFORMATION
  Report Type: Spontaneous
  Country: CA (occurrence: CA)
  Receive Date: 20210912
  Receipt Date: 20210912
  Transmission Date: 20211014
  Serious: Yes (Hospitalization)
  Sender: FDA-Public Use
  Company Number: CA-TEVA-2021-CA-1951082

PATIENT
  Age: 54 Year
  Sex: Male

DRUGS (8)
  1. LAXATIVES [Concomitant]
     Active Substance: UNSPECIFIED INGREDIENT
  2. LIXIANA [Concomitant]
     Active Substance: EDOXABAN TOSYLATE
  3. COLACE [Concomitant]
     Active Substance: DOCUSATE SODIUM
  4. HYDROMORPH CONTIN [Concomitant]
     Active Substance: HYDROMORPHONE
  5. CARBOPLATIN. [Suspect]
     Active Substance: CARBOPLATIN
     Indication: METASTATIC NEOPLASM
  6. GEMCITABINE. [Suspect]
     Active Substance: GEMCITABINE
     Indication: METASTATIC NEOPLASM
     Route: 065
  7. PANTOLOC [Concomitant]
     Active Substance: PANTOPRAZOLE SODIUM
  8. DILAUDID [Concomitant]
     Active Substance: HYDROMORPHONE HYDROCHLORIDE

REACTIONS (3)
  - Platelet transfusion [Unknown]
  - Psychomotor retardation [Unknown]
  - Pancytopenia [Unknown]
